FAERS Safety Report 15877199 (Version 1)
Quarter: 2019Q1

REPORT INFORMATION
  Report Type: Spontaneous
  Country: US (occurrence: US)
  Receive Date: 20190128
  Receipt Date: 20190128
  Transmission Date: 20190417
  Serious: Yes (Other)
  Sender: FDA-Public Use
  Company Number: US-SA-2017SA019267

PATIENT
  Age: 79 Year
  Sex: Female
  Weight: 60 kg

DRUGS (8)
  1. MULTAQ [Suspect]
     Active Substance: DRONEDARONE
     Dosage: 200 MG,BID
     Route: 048
     Dates: start: 201610
  2. ELIQUIS [Concomitant]
     Active Substance: APIXABAN
     Indication: THROMBOSIS PROPHYLAXIS
     Dosage: UNK UNK,BID
     Route: 065
  3. MULTAQ [Suspect]
     Active Substance: DRONEDARONE
     Indication: ATRIAL FIBRILLATION
     Dosage: 200 MG,BID
     Route: 048
     Dates: start: 201610
  4. DIGOXIN. [Concomitant]
     Active Substance: DIGOXIN
     Indication: CARDIAC DISORDER
     Dosage: UNK UNK,UNK
     Route: 065
  5. MULTAQ [Suspect]
     Active Substance: DRONEDARONE
     Dosage: 400 MG, BID
     Route: 048
     Dates: start: 2016, end: 201801
  6. SYNTHROID [Concomitant]
     Active Substance: LEVOTHYROXINE SODIUM
     Indication: HYPOTHYROIDISM
     Dosage: 50 UG,QD
     Route: 065
  7. MULTAQ [Suspect]
     Active Substance: DRONEDARONE
     Dosage: 200 MG,BID
     Route: 048
     Dates: start: 201610
  8. DIGOXIN. [Concomitant]
     Active Substance: DIGOXIN
     Dosage: 125 UG,QD
     Route: 065
     Dates: start: 20170127

REACTIONS (5)
  - Blood pressure decreased [Recovered/Resolved]
  - Atrial fibrillation [Recovered/Resolved]
  - Visual impairment [Unknown]
  - Pulse abnormal [Unknown]
  - Therapeutic response decreased [Unknown]

NARRATIVE: CASE EVENT DATE: 201712
